FAERS Safety Report 22346175 (Version 1)
Quarter: 2023Q2

REPORT INFORMATION
  Report Type: Report from Study
  Country: US (occurrence: US)
  Receive Date: 20230519
  Receipt Date: 20230519
  Transmission Date: 20230722
  Serious: Yes (Other)
  Sender: FDA-Public Use
  Company Number: US-002147023-NVSC2023US110757

PATIENT
  Age: 46 Year
  Sex: Female

DRUGS (4)
  1. TRIAMCINOLONE ACETONIDE [Suspect]
     Active Substance: TRIAMCINOLONE ACETONIDE
     Indication: Psoriasis
     Dosage: UNK
     Route: 065
  2. AZELASTINE [Suspect]
     Active Substance: AZELASTINE
     Indication: Product used for unknown indication
     Dosage: UNK
     Route: 065
  3. IBUPROFEN [Suspect]
     Active Substance: IBUPROFEN
     Indication: Product used for unknown indication
     Dosage: UNK
     Route: 065
  4. OXYCODONE [Suspect]
     Active Substance: OXYCODONE
     Indication: Product used for unknown indication
     Dosage: UNK
     Route: 065

REACTIONS (16)
  - Psoriatic arthropathy [Unknown]
  - Neoplasm [Unknown]
  - Swelling [Unknown]
  - Asthenia [Unknown]
  - Skin plaque [Unknown]
  - Xerosis [Unknown]
  - Raynaud^s phenomenon [Unknown]
  - Seborrhoeic keratosis [Unknown]
  - Dysplastic naevus [Unknown]
  - Haemangioma of skin [Unknown]
  - Melanocytic naevus [Unknown]
  - Lentigo [Unknown]
  - Blood albumin increased [Unknown]
  - Tri-iodothyronine uptake decreased [Unknown]
  - Platelet count increased [Unknown]
  - Psoriasis [Unknown]

NARRATIVE: CASE EVENT DATE: 20221230
